FAERS Safety Report 25586212 (Version 1)
Quarter: 2025Q3

REPORT INFORMATION
  Report Type: Spontaneous
  Country: US (occurrence: None)
  Receive Date: 20250721
  Receipt Date: 20250721
  Transmission Date: 20251021
  Serious: No
  Sender: FDA-CTU
  Company Number: None

PATIENT
  Age: 77 Year
  Sex: Female

DRUGS (1)
  1. DASATINIB [Suspect]
     Active Substance: DASATINIB
     Indication: Toxic encephalopathy
     Route: 048
     Dates: start: 202502

REACTIONS (3)
  - Chest pain [None]
  - Back pain [None]
  - Arthralgia [None]
